FAERS Safety Report 24989658 (Version 7)
Quarter: 2025Q3

REPORT INFORMATION
  Report Type: Report from Study
  Country: CA (occurrence: CA)
  Receive Date: 20250220
  Receipt Date: 20250708
  Transmission Date: 20251020
  Serious: Yes (Hospitalization, Other)
  Sender: SAMSUNG BIOEPIS
  Company Number: CA-SAMSUNG BIOEPIS-SB-2025-05959

PATIENT
  Age: 67 Year
  Sex: Male

DRUGS (7)
  1. RENFLEXIS [Suspect]
     Active Substance: INFLIXIMAB-ABDA
     Indication: Immune-mediated enterocolitis
     Route: 042
     Dates: start: 20241213
  2. RENFLEXIS [Suspect]
     Active Substance: INFLIXIMAB-ABDA
     Dosage: SECOND INFUSION WAS RECEIVED ON 27-DEC-2024;
  3. RENFLEXIS [Suspect]
     Active Substance: INFLIXIMAB-ABDA
  4. RENFLEXIS [Suspect]
     Active Substance: INFLIXIMAB-ABDA
     Route: 042
     Dates: start: 20241227
  5. RENFLEXIS [Suspect]
     Active Substance: INFLIXIMAB-ABDA
     Route: 042
     Dates: start: 20250225
  6. RENFLEXIS [Suspect]
     Active Substance: INFLIXIMAB-ABDA
     Route: 042
     Dates: start: 20241213
  7. PREDNISONE [Concomitant]
     Active Substance: PREDNISONE
     Indication: Product used for unknown indication

REACTIONS (11)
  - Renal cancer stage IV [Recovering/Resolving]
  - Pulmonary embolism [Unknown]
  - Brain oedema [Unknown]
  - Immune-mediated enterocolitis [Unknown]
  - Disease recurrence [Unknown]
  - Defaecation urgency [Unknown]
  - Incontinence [Unknown]
  - Flatulence [Unknown]
  - Diarrhoea [Unknown]
  - Central nervous system lesion [Unknown]
  - Off label use [Unknown]

NARRATIVE: CASE EVENT DATE: 20250420
